FAERS Safety Report 5912139-X (Version None)
Quarter: 2008Q4

REPORT INFORMATION
  Report Type: 
  Country: None (occurrence: None)
  Receive Date: 20081008
  Receipt Date: 20080929
  Transmission Date: 20090506
  Serious: Yes (Life-Threatening, Hospitalization)
  Sender: FDA-Public Use
  Company Number: DE-GILEAD-2008-0018410

PATIENT
  Sex: Female
  Weight: 52 kg

DRUGS (9)
  1. TRUVADA [Suspect]
     Indication: HIV INFECTION
     Route: 048
     Dates: start: 20080101, end: 20080919
  2. NORVIR [Concomitant]
     Indication: HIV INFECTION
     Dates: start: 20051101
  3. TELZIR [Concomitant]
     Indication: HIV INFECTION
     Dates: start: 20051101
  4. FLUVASTATIN [Concomitant]
  5. METOPROLOL TARTRATE [Concomitant]
     Dates: start: 20040101
  6. BENZAFIBRATE [Concomitant]
     Dates: start: 20040101
  7. AGGRENOX [Concomitant]
  8. CELEBREX [Concomitant]
  9. GABAPENTIN [Concomitant]

REACTIONS (2)
  - ACUTE MYOCARDIAL INFARCTION [None]
  - RENAL FAILURE ACUTE [None]
